FAERS Safety Report 4863174-4 (Version None)
Quarter: 2005Q4

REPORT INFORMATION
  Report Type: 
  Country: None (occurrence: None)
  Receive Date: 20051201
  Receipt Date: 20050721
  Transmission Date: 20060501
  Serious: No
  Sender: FDA-Public Use
  Company Number: 2005PV000504

PATIENT
  Age: 68 Year
  Sex: Male
  Weight: 110.2241 kg

DRUGS (12)
  1. BYETTA [Suspect]
     Indication: DIABETES MELLITUS NON-INSULIN-DEPENDENT
     Dosage: 5 UG;BID;SC
     Route: 058
     Dates: start: 20050628, end: 20050720
  2. AMARYL [Concomitant]
  3. GLUCOPHAGE [Concomitant]
  4. ZOCOR [Concomitant]
  5. TRICOR [Concomitant]
  6. COZAAR [Concomitant]
  7. PROZAC [Concomitant]
  8. HYDROCHLOROTHIAZIDE [Concomitant]
  9. LEVOTHYROXINE SODIUM [Concomitant]
  10. ALLEGRA [Concomitant]
  11. ALBUTEROL SULFATE AUTOHALER [Concomitant]
  12. PULMICORT [Concomitant]

REACTIONS (2)
  - BLOOD GLUCOSE ABNORMAL [None]
  - NAUSEA [None]
